FAERS Safety Report 10044659 (Version 2)
Quarter: 2014Q2

REPORT INFORMATION
  Report Type: Report from Study
  Country: DE (occurrence: CL)
  Receive Date: 20140328
  Receipt Date: 20140423
  Transmission Date: 20141212
  Serious: Yes (Other)
  Sender: FDA-Public Use
  Company Number: DE-ACTELION-A-NJ2014-96716

PATIENT
  Age: 45 Year
  Sex: Female

DRUGS (8)
  1. VENTAVIS [Suspect]
     Indication: PRODUCT USED FOR UNKNOWN INDICATION
     Dosage: UNK
     Route: 055
     Dates: start: 201311
  2. NEO-SINTROM [Suspect]
     Route: 048
  3. SILDENAFIL [Suspect]
  4. DILTIAZEM [Concomitant]
  5. L ARGININ HCL [Concomitant]
  6. FUROSEMIDA [Concomitant]
  7. NEBILET [Concomitant]
  8. CHLORPHENAMINE [Concomitant]

REACTIONS (8)
  - Rotavirus infection [Recovering/Resolving]
  - Diarrhoea [Recovering/Resolving]
  - Haematemesis [Recovering/Resolving]
  - Haematochezia [Recovered/Resolved]
  - Haematochezia [Recovered/Resolved]
  - Feeling abnormal [Recovering/Resolving]
  - Labelled drug-drug interaction medication error [Recovering/Resolving]
  - International normalised ratio increased [Unknown]
